FAERS Safety Report 9454016 (Version 1)
Quarter: 2013Q3

REPORT INFORMATION
  Report Type: Spontaneous
  Country: US (occurrence: US)
  Receive Date: 20130812
  Receipt Date: 20130812
  Transmission Date: 20140515
  Serious: No
  Sender: FDA-Public Use
  Company Number: US-THROMBOGENICS INC-JET-2013-181

PATIENT
  Sex: 0

DRUGS (8)
  1. JETREA [Suspect]
     Indication: VITREOUS ADHESIONS
     Dosage: 0.125 MG, ONE TIME DOSE
     Dates: start: 20130614, end: 20130614
  2. FLAXSEED OIL [Concomitant]
     Indication: MEDICAL DIET
     Dosage: UNK, QD
     Dates: start: 2008
  3. GLUCOSAMINE [Concomitant]
     Indication: MEDICAL DIET
     Dosage: UNK UNK, QD
     Dates: start: 2008
  4. VITAMIN B [Concomitant]
     Indication: MEDICAL DIET
     Dosage: UNK UNK, QD
     Dates: start: 2008
  5. VITAMIN D                          /00107901/ [Concomitant]
     Indication: MEDICAL DIET
     Dosage: UNK UNK, QD
     Dates: start: 2008
  6. RED YEAST RICE [Concomitant]
     Indication: BLOOD CHOLESTEROL
     Dosage: UNK, QD
     Dates: start: 201301
  7. MULTIVITAMIN                       /00097801/ [Concomitant]
     Indication: MEDICAL DIET
     Dosage: UNK, QD
     Dates: start: 2008
  8. FISH OIL [Concomitant]
     Indication: MEDICAL DIET
     Dosage: UNK UNK, QD

REACTIONS (2)
  - Visual acuity reduced [Not Recovered/Not Resolved]
  - Visual impairment [Not Recovered/Not Resolved]
